FAERS Safety Report 4473084-2 (Version None)
Quarter: 2004Q3

REPORT INFORMATION
  Report Type: 
  Country: None (occurrence: None)
  Receive Date: 20040917
  Receipt Date: 20040810
  Transmission Date: 20050211
  Serious: Yes (Other)
  Sender: FDA-Public Use
  Company Number: NSADSS2003009411

PATIENT
  Age: 22 Year
  Sex: Female
  Weight: 87.9978 kg

DRUGS (6)
  1. ORTHO EVRA [Suspect]
     Indication: CONTRACEPTION
     Dosage: 1, 3 IN 4 WEEK, TRANSDERMAL
     Route: 062
     Dates: start: 20030101
  2. ZITHROMAX  (AZITHROMYCIN) UNSPECIFIED [Concomitant]
  3. AUGMENTIN [Concomitant]
  4. AMOXICILLIN [Concomitant]
  5. PRENATAL VITAMINS (PRENATAL VITAMINS) [Concomitant]
  6. VICODIN [Concomitant]

REACTIONS (3)
  - DRUG EXPOSURE DURING PREGNANCY [None]
  - SINUSITIS [None]
  - UNINTENDED PREGNANCY [None]
